FAERS Safety Report 4303645-2 (Version None)
Quarter: 2004Q1

REPORT INFORMATION
  Report Type: 
  Country: None (occurrence: None)
  Receive Date: 20040223
  Receipt Date: 20040210
  Transmission Date: 20041129
  Serious: Yes (Hospitalization, Other)
  Sender: FDA-Public Use
  Company Number: 2004009409

PATIENT
  Age: 60 Year
  Sex: Female

DRUGS (3)
  1. GABAPENTIN [Suspect]
     Indication: NEUROPATHIC PAIN
     Dosage: 600 MG (DAILY), ORAL
     Route: 048
     Dates: start: 20030401
  2. ALENDRONATE SODIUM [Concomitant]
  3. FIBRINOLYSIN (FIBRINOLYSIN) [Concomitant]

REACTIONS (2)
  - THYROID OPERATION [None]
  - THYROIDECTOMY [None]
